FAERS Safety Report 8308818-X (Version None)
Quarter: 2012Q2

REPORT INFORMATION
  Report Type: 
  Country: None (occurrence: None)
  Receive Date: 20120424
  Receipt Date: 20120413
  Transmission Date: 20120825
  Serious: Yes (Other)
  Sender: FDA-Public Use
  Company Number: US-ACTELION-A-NJ2012-63272

PATIENT

DRUGS (6)
  1. POTASSIUM CHLORIDE [Concomitant]
  2. LOVAZA [Concomitant]
  3. COUMADIN [Concomitant]
  4. TRACLEER [Suspect]
     Indication: PULMONARY ARTERIAL HYPERTENSION
     Dosage: UNK
     Route: 048
     Dates: start: 20110429
  5. BYSTOLIC [Concomitant]
  6. BUMEX [Concomitant]

REACTIONS (5)
  - HYPERKALAEMIA [None]
  - INTERNATIONAL NORMALISED RATIO DECREASED [None]
  - CHEST DISCOMFORT [None]
  - DYSPNOEA [None]
  - HYPOTENSION [None]
